FAERS Safety Report 5942266-2 (Version None)
Quarter: 2008Q4

REPORT INFORMATION
  Report Type: 
  Country: None (occurrence: None)
  Receive Date: 20081105
  Receipt Date: 20081024
  Transmission Date: 20090506
  Serious: Yes (Other)
  Sender: FDA-Public Use
  Company Number: AU-WYE-H06543808

PATIENT

DRUGS (1)
  1. SOMAC [Suspect]
     Dosage: DOSE AND FREQUENCY UNSPECIFIED

REACTIONS (1)
  - RENAL FAILURE [None]
